FAERS Safety Report 20473133 (Version 2)
Quarter: 2022Q1

REPORT INFORMATION
  Report Type: Spontaneous
  Country: US (occurrence: None)
  Receive Date: 20220215
  Receipt Date: 20220326
  Transmission Date: 20220423
  Serious: Yes (Hospitalization)
  Sender: FDA-Public Use
  Company Number: US-ROCHE-3020723

PATIENT
  Age: 73 Year
  Sex: Male
  Weight: 71.1 kg

DRUGS (1)
  1. ACTEMRA [Suspect]
     Active Substance: TOCILIZUMAB
     Indication: COVID-19
     Route: 040
     Dates: start: 20220119, end: 20220119

REACTIONS (4)
  - Off label use [Unknown]
  - Decubitus ulcer [Unknown]
  - Dyspnoea [Unknown]
  - Neoplasm [Unknown]
